FAERS Safety Report 10955069 (Version 1)
Quarter: 2015Q1

REPORT INFORMATION
  Report Type: Report from Study
  Country: CA (occurrence: CA)
  Receive Date: 20150325
  Receipt Date: 20150325
  Transmission Date: 20150721
  Serious: Yes (Death)
  Sender: FDA-Public Use
  Company Number: PHHY2014CA077012

PATIENT
  Age: 71 Year
  Sex: Female

DRUGS (5)
  1. SANDOSTATIN LAR DEPOT [Suspect]
     Active Substance: OCTREOTIDE ACETATE
     Indication: CARCINOID SYNDROME
     Dosage: 20 MG, EVERY 4 WEEKS
     Route: 030
     Dates: start: 20140624
  2. SANDOSTATIN LAR DEPOT [Suspect]
     Active Substance: OCTREOTIDE ACETATE
     Dosage: 30 MG, EVERY 4 WEEKS
     Route: 030
     Dates: start: 20140807
  3. SANDOSTATIN [Suspect]
     Active Substance: OCTREOTIDE ACETATE
     Indication: CARCINOID SYNDROME
     Dosage: 50 UG, TID
     Route: 058
     Dates: start: 20140609, end: 201406
  4. SANDOSTATIN LAR DEPOT [Suspect]
     Active Substance: OCTREOTIDE ACETATE
     Dosage: 30 MG, EVERY 4 WEEKS
     Route: 030
     Dates: start: 20140903, end: 20150217
  5. ATIVAN [Suspect]
     Active Substance: LORAZEPAM
     Indication: PRODUCT USED FOR UNKNOWN INDICATION
     Dosage: UNK OT, QHS
     Route: 065

REACTIONS (22)
  - Decreased appetite [Not Recovered/Not Resolved]
  - Sleep disorder [Unknown]
  - Pain [Unknown]
  - Feeling jittery [Recovered/Resolved]
  - Lymphadenopathy [Unknown]
  - Haemoglobin decreased [Unknown]
  - Constipation [Unknown]
  - Death [Fatal]
  - Pollakiuria [Recovered/Resolved]
  - Sensation of foreign body [Recovered/Resolved]
  - Pyrexia [Unknown]
  - Blood pressure systolic increased [Unknown]
  - Blood pressure diastolic decreased [Unknown]
  - Chills [Recovered/Resolved]
  - Tooth abscess [Unknown]
  - Diarrhoea [Recovered/Resolved]
  - Abdominal pain upper [Not Recovered/Not Resolved]
  - Frequent bowel movements [Unknown]
  - Fatigue [Unknown]
  - Palpitations [Recovered/Resolved]
  - Insomnia [Unknown]
  - Hot flush [Unknown]

NARRATIVE: CASE EVENT DATE: 2014
